FAERS Safety Report 16521033 (Version 1)
Quarter: 2019Q3

REPORT INFORMATION
  Report Type: Other
  Country: DE (occurrence: DE)
  Receive Date: 20190703
  Receipt Date: 20190703
  Transmission Date: 20191004
  Serious: No
  Sender: FDA-Public Use
  Company Number: DE-LUPIN PHARMACEUTICALS INC.-2018-05509

PATIENT
  Age: 49 Year
  Sex: Female
  Weight: 102 kg

DRUGS (1)
  1. SIMVASTATIN. [Suspect]
     Active Substance: SIMVASTATIN
     Indication: LIPOPROTEIN (A) INCREASED
     Dosage: 40 MG, QD, IN THE EVENING (TAKEN BEFORE THE FIRST PRESENTATION HERE (21.04.2014)
     Route: 048
     Dates: start: 20140121, end: 20180402

REACTIONS (2)
  - Myalgia [Recovered/Resolved]
  - Bone pain [Recovered/Resolved]

NARRATIVE: CASE EVENT DATE: 20180201
